FAERS Safety Report 21073704 (Version 1)
Quarter: 2022Q3

REPORT INFORMATION
  Report Type: Spontaneous
  Country: FR (occurrence: FR)
  Receive Date: 20220713
  Receipt Date: 20220713
  Transmission Date: 20221027
  Serious: Yes (Other)
  Sender: FDA-Public Use
  Company Number: FR-CELLTRION INC.-2022FR010788

PATIENT

DRUGS (6)
  1. INFLIXIMAB [Suspect]
     Active Substance: INFLIXIMAB
     Indication: Immune reconstitution inflammatory syndrome associated tuberculosis
     Dosage: 5 MG/KG, EVERY 6 WEEKS
  2. INFLIXIMAB [Suspect]
     Active Substance: INFLIXIMAB
     Dosage: 5 MG/KG, (D1, D15, M15)
  3. TENOFOVIR [Concomitant]
     Active Substance: TENOFOVIR
     Indication: Immune reconstitution inflammatory syndrome associated tuberculosis
     Dosage: UNKNOWN
  4. LAMIVUDINE [Concomitant]
     Active Substance: LAMIVUDINE
     Indication: Immune reconstitution inflammatory syndrome associated tuberculosis
     Dosage: UNKNOWN
  5. EFAVIRENZ [Concomitant]
     Active Substance: EFAVIRENZ
     Indication: Immune reconstitution inflammatory syndrome associated tuberculosis
     Dosage: UNKNOWN
  6. PREDNISONE [Concomitant]
     Active Substance: PREDNISONE
     Indication: Immune reconstitution inflammatory syndrome associated tuberculosis
     Dosage: 1 MG/KG, QD (MEDIAN DOSE OF 0.65 MG/KG/DAY)

REACTIONS (2)
  - Immune reconstitution inflammatory syndrome associated tuberculosis [Recovered/Resolved]
  - Off label use [Unknown]
